FAERS Safety Report 14977945 (Version 2)
Quarter: 2018Q2

REPORT INFORMATION
  Report Type: Spontaneous
  Country: US (occurrence: US)
  Receive Date: 20180606
  Receipt Date: 20180608
  Transmission Date: 20180711
  Serious: No
  Sender: FDA-Public Use
  Company Number: US-PFIZER INC-2018228909

PATIENT
  Age: 35 Year
  Sex: Female
  Weight: 53.52 kg

DRUGS (2)
  1. PHENELZINE SULFATE. [Suspect]
     Active Substance: PHENELZINE SULFATE
     Indication: SOCIAL ANXIETY DISORDER
     Dosage: UNK
  2. PHENELZINE SULFATE. [Suspect]
     Active Substance: PHENELZINE SULFATE
     Indication: DEPRESSION
     Dosage: 52.7MG (FOUR TABLETS; CUT A TABLET IN HALF/ TAKES 52.7 MG,RATHER THAN 60)
     Route: 048
     Dates: start: 201712

REACTIONS (3)
  - Headache [Not Recovered/Not Resolved]
  - Intentional product use issue [Unknown]
  - Product quality issue [Unknown]
